FAERS Safety Report 9897214 (Version 2)
Quarter: 2014Q1

REPORT INFORMATION
  Report Type: Report from Study
  Country: US (occurrence: US)
  Receive Date: 20140214
  Receipt Date: 20140313
  Transmission Date: 20141002
  Serious: Yes (Death)
  Sender: FDA-Public Use
  Company Number: US-ROCHE-1323048

PATIENT
  Age: 74 Year
  Sex: Male
  Weight: 52.1 kg

DRUGS (11)
  1. AVASTIN [Suspect]
     Indication: CHOLANGIOCARCINOMA
     Route: 042
     Dates: start: 20110216
  2. AVASTIN [Suspect]
     Indication: METASTASES TO LUNG
     Route: 042
     Dates: start: 20110323
  3. AVASTIN [Suspect]
     Route: 042
     Dates: start: 20110420
  4. AVASTIN [Suspect]
     Dosage: LAST DOSE.
     Route: 042
     Dates: start: 20110615
  5. AVASTIN [Suspect]
     Route: 042
     Dates: start: 20110406
  6. DEXAMETHASONE [Concomitant]
     Route: 042
  7. NOVOLOG [Concomitant]
     Indication: DIABETES MELLITUS
     Dosage: 70/30.
     Route: 058
     Dates: start: 20110716
  8. NORCO [Concomitant]
     Indication: PAIN
     Dosage: DOSE: 5/500 MG.
     Route: 048
     Dates: start: 20110716
  9. ZOFRAN ODT [Concomitant]
     Indication: NAUSEA
     Route: 065
     Dates: start: 20110716
  10. PHENERGAN [Concomitant]
     Indication: NAUSEA
     Route: 048
     Dates: start: 20110716
  11. GEMCITABINE [Concomitant]
     Route: 065
     Dates: start: 20110629

REACTIONS (5)
  - Hepatic failure [Fatal]
  - Cholangiocarcinoma [Fatal]
  - Body temperature increased [Unknown]
  - Constipation [Unknown]
  - Off label use [Unknown]
